FAERS Safety Report 8267732-9 (Version None)
Quarter: 2012Q2

REPORT INFORMATION
  Report Type: 
  Country: None (occurrence: None)
  Receive Date: 20120409
  Receipt Date: 20120330
  Transmission Date: 20120825
  Serious: Yes (Hospitalization, Other)
  Sender: FDA-Public Use
  Company Number: FR-JNJFOC-20120402790

PATIENT
  Age: 3 Year
  Sex: Male

DRUGS (2)
  1. TRAMADOL HCL [Suspect]
     Indication: PRODUCT USED FOR UNKNOWN INDICATION
     Route: 048
     Dates: start: 20120315
  2. ACETAMINOPHEN [Suspect]
     Indication: PRODUCT USED FOR UNKNOWN INDICATION
     Route: 048
     Dates: start: 20120315

REACTIONS (3)
  - SOMNOLENCE [None]
  - OVERDOSE [None]
  - MEDICATION ERROR [None]
